FAERS Safety Report 7688482-3 (Version None)
Quarter: 2011Q3

REPORT INFORMATION
  Report Type: 
  Country: None (occurrence: None)
  Receive Date: 20110817
  Receipt Date: 20110808
  Transmission Date: 20111222
  Serious: Yes (Other)
  Sender: FDA-Public Use
  Company Number: IN-PURDUE-GBR-2011-0008623

PATIENT
  Age: 57 Year
  Sex: Female

DRUGS (13)
  1. PROMETHAZINE [Suspect]
     Indication: PREMEDICATION
     Dosage: 25 MG, SINGLE
     Route: 030
  2. MORPHINE SULFATE [Interacting]
     Indication: PREMEDICATION
     Dosage: 0.2 MG/KG, AM
     Route: 048
  3. DIAZEPAM [Suspect]
     Dosage: 10 MG, PM
     Route: 048
  4. METOPROLOL TARTRATE [Suspect]
     Indication: PREMEDICATION
     Dosage: 50 MG, DAILY
     Route: 048
  5. ROCURONIUM BROMIDE [Suspect]
     Indication: ANAESTHESIA
  6. PANCURONIUM [Suspect]
     Indication: ANAESTHESIA
  7. NITROGLYCERIN [Suspect]
     Route: 042
  8. FLUOXETINE [Interacting]
     Indication: PRODUCT USED FOR UNKNOWN INDICATION
     Dosage: 60 MG, DAILY
  9. METOPROLOL TARTRATE [Suspect]
     Dosage: 100 MG, DAILY
  10. MIDAZOLAM HCL [Suspect]
     Indication: ANAESTHESIA
  11. DIAZEPAM [Suspect]
     Indication: PREMEDICATION
     Dosage: 15 MG, UNK
     Route: 048
  12. THIOPENTAL SODIUM [Suspect]
     Indication: ANAESTHESIA
  13. FENTANYL [Suspect]
     Indication: ANAESTHESIA
     Dosage: 1 UNK, UNK

REACTIONS (2)
  - DRUG INTERACTION [None]
  - SEROTONIN SYNDROME [None]
